FAERS Safety Report 25655766 (Version 1)
Quarter: 2025Q3

REPORT INFORMATION
  Report Type: Spontaneous
  Country: US (occurrence: US)
  Receive Date: 20250807
  Receipt Date: 20250807
  Transmission Date: 20251021
  Serious: Yes (Hospitalization, Other)
  Sender: LABORATOIRES SERB
  Company Number: US-SERB S.A.S.-2182059

PATIENT
  Age: 65 Year
  Sex: Male

DRUGS (3)
  1. VORAXAZE [Suspect]
     Active Substance: GLUCARPIDASE
     Indication: Toxicity to various agents
     Dates: start: 20250716, end: 20250716
  2. LEUCOVORIN [Concomitant]
     Active Substance: LEUCOVORIN\LEUCOVORIN CALCIUM
  3. METHOTREXATE [Concomitant]
     Active Substance: METHOTREXATE
     Dates: start: 20250713

REACTIONS (6)
  - Blood creatinine increased [Not Recovered/Not Resolved]
  - Contraindicated product administered [Unknown]
  - Product availability issue [Unknown]
  - Off label use [Unknown]
  - Treatment delayed [Unknown]
  - Hypervolaemia [Not Recovered/Not Resolved]
